FAERS Safety Report 4488258-4 (Version None)
Quarter: 2004Q4

REPORT INFORMATION
  Report Type: 
  Country: None (occurrence: None)
  Receive Date: 20041026
  Receipt Date: 20041026
  Transmission Date: 20050328
  Serious: Yes (Hospitalization)
  Sender: FDA-Public Use
  Company Number: CSTI571E2121004

PATIENT
  Sex: Female
  Weight: 72 kg

DRUGS (6)
  1. IMATINIB MESYLATE [Suspect]
     Indication: INTERSTITIAL LUNG DISEASE
     Dosage: 600MG DAILY; ORAL
     Route: 048
     Dates: start: 20040623
  2. BENTYL [Concomitant]
  3. SYNTHROID [Concomitant]
  4. METOPROLOL SUCCINATE [Concomitant]
  5. VIOXX [Concomitant]
  6. RESTORIL [Concomitant]

REACTIONS (6)
  - CONDITION AGGRAVATED [None]
  - DYSPNOEA [None]
  - INTERSTITIAL LUNG DISEASE [None]
  - OXYGEN SATURATION DECREASED [None]
  - PAIN [None]
  - PULMONARY HYPERTENSION [None]
